FAERS Safety Report 12235248 (Version 1)
Quarter: 2016Q2

REPORT INFORMATION
  Report Type: Spontaneous
  Country: US (occurrence: US)
  Receive Date: 20160404
  Receipt Date: 20160404
  Transmission Date: 20160815
  Serious: No
  Sender: FDA-Public Use
  Company Number: US-TARO-2015TAR00705

PATIENT
  Sex: Male
  Weight: 79.37 kg

DRUGS (2)
  1. DASATINIB [Concomitant]
     Active Substance: DASATINIB
     Dosage: 40 MG, 1X/DAY
  2. FLUOROURACIL TOPICAL CREAM USP 5% [Suspect]
     Active Substance: FLUOROURACIL
     Indication: BASAL CELL CARCINOMA
     Dosage: PEA SIZED, SMALL AMOUNT TO FOREHEAD, TWICE/DAILY
     Route: 061
     Dates: start: 201411, end: 2015

REACTIONS (1)
  - Drug ineffective [Not Recovered/Not Resolved]
